FAERS Safety Report 7545346-3 (Version None)
Quarter: 2011Q2

REPORT INFORMATION
  Report Type: 
  Country: None (occurrence: None)
  Receive Date: 20110607
  Receipt Date: 20110526
  Transmission Date: 20111010
  Serious: Yes (Other)
  Sender: FDA-Public Use
  Company Number: DSU-2011-03922

PATIENT

DRUGS (1)
  1. WELCHOL [Suspect]
     Indication: PRODUCT USED FOR UNKNOWN INDICATION
     Dosage: PER ORAL
     Route: 048

REACTIONS (1)
  - HERNIA REPAIR [None]
